FAERS Safety Report 9220681 (Version 1)
Quarter: 2013Q2

REPORT INFORMATION
  Report Type: Spontaneous
  Country: US (occurrence: US)
  Receive Date: 20130409
  Receipt Date: 20130409
  Transmission Date: 20140414
  Serious: No
  Sender: FDA-Public Use
  Company Number: US-UPSHER-SMITH LABORATORIES, INC.-13000791

PATIENT
  Sex: Male

DRUGS (7)
  1. PREVALITE [Suspect]
     Indication: BLOOD TRIGLYCERIDES INCREASED
     Dosage: 4 G, QD
     Route: 048
     Dates: start: 201301
  2. NOVOLOG MIX [Concomitant]
     Dosage: UNK
  3. PLAVIX                             /01220701/ [Concomitant]
     Dosage: UNK
  4. DIOVAN COMP [Concomitant]
     Dosage: UNK
  5. RANITIDINE [Concomitant]
     Dosage: UNK
  6. MULTIVITAMIN                       /01229101/ [Concomitant]
     Dosage: UNK
  7. VITAMIN E                          /00110501/ [Concomitant]
     Dosage: UNK

REACTIONS (1)
  - Muscle spasms [Not Recovered/Not Resolved]
